FAERS Safety Report 23978090 (Version 2)
Quarter: 2024Q3

REPORT INFORMATION
  Report Type: Spontaneous
  Country: US (occurrence: US)
  Receive Date: 20240614
  Receipt Date: 20240715
  Transmission Date: 20241016
  Serious: Yes (Hospitalization, Other)
  Sender: BRISTOL MYERS SQUIBB
  Company Number: US-BRISTOL-MYERS SQUIBB COMPANY-2024-095949

PATIENT
  Age: 72 Year
  Sex: Female
  Weight: 61.23 kg

DRUGS (1)
  1. REVLIMID [Suspect]
     Active Substance: LENALIDOMIDE
     Indication: Plasma cell myeloma
     Dosage: DAILY FOR 14 DAYS ON, THEN 7 DAYS OFF
     Route: 048

REACTIONS (3)
  - Pulmonary embolism [Recovering/Resolving]
  - Off label use [Unknown]
  - Colitis [Unknown]

NARRATIVE: CASE EVENT DATE: 20240701
